FAERS Safety Report 6984073-8 (Version None)
Quarter: 2010Q3

REPORT INFORMATION
  Report Type: 
  Country: None (occurrence: None)
  Receive Date: 20100915
  Receipt Date: 20090522
  Transmission Date: 20110219
  Serious: No
  Sender: FDA-Public Use
  Company Number: US-WYE-H09488509

PATIENT
  Age: 43 Year
  Sex: Female

DRUGS (2)
  1. PRISTIQ [Suspect]
     Route: 048
     Dates: start: 20090201
  2. B12 ^RECIP^ [Concomitant]

REACTIONS (1)
  - DRUG SCREEN POSITIVE [None]
